FAERS Safety Report 6284083-2 (Version None)
Quarter: 2009Q3

REPORT INFORMATION
  Report Type: 
  Country: None (occurrence: None)
  Receive Date: 20090727
  Receipt Date: 20090716
  Transmission Date: 20100115
  Serious: Yes (Other)
  Sender: FDA-Public Use
  Company Number: GB-ELI_LILLY_AND_COMPANY-GB200907003242

PATIENT
  Age: 40 Year
  Sex: Male

DRUGS (2)
  1. HUMALOG [Suspect]
     Dosage: UNK, UNK
  2. LANTUS [Concomitant]
     Dosage: 25 IU, UNK
     Route: 058
     Dates: start: 20050201, end: 20061001

REACTIONS (4)
  - EXTRASYSTOLES [None]
  - GLYCOSURIA [None]
  - HYPERGLYCAEMIA [None]
  - SINUS TACHYCARDIA [None]
